FAERS Safety Report 6387350-7 (Version None)
Quarter: 2009Q3

REPORT INFORMATION
  Report Type: 
  Country: None (occurrence: None)
  Receive Date: 20090930
  Receipt Date: 20090914
  Transmission Date: 20100115
  Serious: Yes (Hospitalization)
  Sender: FDA-Public Use
  Company Number: 2009AL003557

PATIENT
  Age: 55 Year
  Sex: Male

DRUGS (16)
  1. DIGOXIN [Suspect]
     Dosage: 0.25MG, DAILY, HALF TAB; 0.25MG, DAILY, PO
     Route: 048
     Dates: end: 20070522
  2. DIGOXIN [Suspect]
     Dosage: 0.25MG, DAILY, HALF TAB; 0.25MG, DAILY, PO
     Route: 048
     Dates: start: 20070522
  3. POTASSIUM CHLORIDE [Concomitant]
  4. QUINIDINE HCL [Concomitant]
  5. MEXITIL [Concomitant]
  6. LISINOPRIL [Concomitant]
  7. LASIX [Concomitant]
  8. XANAX [Concomitant]
  9. AMIODARONE [Concomitant]
  10. ASPIRIN [Concomitant]
  11. SURFAK [Concomitant]
  12. ALDACTONE [Concomitant]
  13. PRINIVIL [Concomitant]
  14. K-DUR [Concomitant]
  15. COREG [Concomitant]
  16. ZINACEF [Concomitant]

REACTIONS (8)
  - CARDIAC FAILURE [None]
  - CONDITION AGGRAVATED [None]
  - ECONOMIC PROBLEM [None]
  - MITRAL VALVE INCOMPETENCE [None]
  - MULTIPLE INJURIES [None]
  - SHOCK [None]
  - TRICUSPID VALVE INCOMPETENCE [None]
  - WAIST CIRCUMFERENCE INCREASED [None]
